FAERS Safety Report 4295737-1 (Version None)
Quarter: 2004Q1

REPORT INFORMATION
  Report Type: 
  Country: None (occurrence: None)
  Receive Date: 20040216
  Receipt Date: 20031022
  Transmission Date: 20041129
  Serious: Yes (Other)
  Sender: FDA-Public Use
  Company Number: US-GLAXOSMITHKLINE-A0431165A

PATIENT
  Age: 3 Year
  Sex: Male

DRUGS (3)
  1. LAMICTAL [Suspect]
     Indication: EPILEPSY
     Dosage: 125MG TWICE PER DAY
     Route: 048
  2. TEGRETOL [Concomitant]
     Dosage: 200MG THREE TIMES PER DAY
  3. DIAZEPAM [Concomitant]
     Route: 054

REACTIONS (1)
  - CONVULSION [None]
